FAERS Safety Report 21185082 (Version 1)
Quarter: 2022Q3

REPORT INFORMATION
  Report Type: Spontaneous
  Country: US (occurrence: None)
  Receive Date: 20220807
  Receipt Date: 20220807
  Transmission Date: 20221026
  Serious: Yes (Life-Threatening, Hospitalization, Disabling)
  Sender: FDA-Public Use
  Company Number: None

PATIENT
  Age: 78 Year
  Sex: Female
  Weight: 55.8 kg

DRUGS (2)
  1. GOLYTELY [Suspect]
     Active Substance: POLYETHYLENE GLYCOL 3350\POTASSIUM CHLORIDE\SODIUM BICARBONATE\SODIUM CHLORIDE\SODIUM SULFATE
     Indication: Colonoscopy
     Dosage: OTHER FREQUENCY : 10 MINUTES;?
     Route: 048
     Dates: start: 20220728, end: 20220729
  2. CALCIUM\VITAMIN D [Concomitant]
     Active Substance: CALCIUM\VITAMIN D

REACTIONS (5)
  - Vomiting [None]
  - Syncope [None]
  - Electrolyte depletion [None]
  - Blood potassium decreased [None]
  - Atrial fibrillation [None]

NARRATIVE: CASE EVENT DATE: 20220731
